FAERS Safety Report 9914395 (Version 1)
Quarter: 2014Q1

REPORT INFORMATION
  Report Type: Spontaneous
  Country: US (occurrence: US)
  Receive Date: 20140220
  Receipt Date: 20140220
  Transmission Date: 20141002
  Serious: No
  Sender: FDA-Public Use
  Company Number: US-GILEAD-2011-0044476

PATIENT
  Sex: Female

DRUGS (5)
  1. ATRIPLA [Suspect]
     Indication: HIV INFECTION
     Dosage: UNK
  2. VIREAD [Concomitant]
     Indication: HIV INFECTION
  3. ISENTRESS [Concomitant]
     Indication: HIV INFECTION
     Dosage: UNK
     Route: 048
     Dates: start: 201101
  4. COMBIVIR [Concomitant]
     Indication: HIV INFECTION
  5. REYATAZ [Concomitant]
     Indication: HIV INFECTION

REACTIONS (1)
  - Unevaluable event [Unknown]
